FAERS Safety Report 6822071-5 (Version None)
Quarter: 2010Q3

REPORT INFORMATION
  Report Type: 
  Country: None (occurrence: None)
  Receive Date: 20100706
  Receipt Date: 20100617
  Transmission Date: 20110219
  Serious: Yes (Other)
  Sender: FDA-Public Use
  Company Number: TRP_07048_2010

PATIENT
  Age: 40 Year
  Sex: Female

DRUGS (5)
  1. RIBAVIRIN [Suspect]
     Indication: HEPATITIS C
     Dosage: (1000 MG, DAILY)
     Dates: start: 20030501, end: 20030101
  2. PEGINTERFERON ALFA-2A [Suspect]
     Indication: HEPATITIS C
     Dosage: SEE IMAGE
     Route: 058
     Dates: start: 20030101, end: 20030101
  3. PEGINTERFERON ALFA-2A [Suspect]
     Indication: HEPATITIS C
     Dosage: SEE IMAGE
     Route: 058
     Dates: start: 20030101, end: 20030101
  4. PEGINTERFERON ALFA-2A [Suspect]
     Indication: HEPATITIS C
     Dosage: SEE IMAGE
     Route: 058
     Dates: start: 20030101, end: 20030101
  5. PEGINTERFERON ALFA-2A [Suspect]
     Indication: HEPATITIS C
     Dosage: SEE IMAGE
     Route: 058
     Dates: start: 20030501, end: 20030101

REACTIONS (11)
  - ALANINE AMINOTRANSFERASE INCREASED [None]
  - ALOPECIA UNIVERSALIS [None]
  - ASPARTATE AMINOTRANSFERASE INCREASED [None]
  - DERMATITIS [None]
  - ECZEMA [None]
  - HYPOTHYROIDISM [None]
  - IRRITABILITY [None]
  - NEUTROPENIA [None]
  - PALPITATIONS [None]
  - TACHYCARDIA [None]
  - WHITE BLOOD CELL COUNT DECREASED [None]
